FAERS Safety Report 4372896-3 (Version None)
Quarter: 2004Q2

REPORT INFORMATION
  Report Type: 
  Country: None (occurrence: None)
  Receive Date: 20040603
  Receipt Date: 20040412
  Transmission Date: 20050107
  Serious: Yes (Disabling)
  Sender: FDA-Public Use
  Company Number: F01200400715

PATIENT
  Age: 40 Year
  Sex: Female

DRUGS (3)
  1. OXALIPLATIN - SOLUTION - 85 MG/M2 [Suspect]
     Indication: GASTROINTESTINAL CANCER METASTATIC
     Dosage: 85 MG/M2 Q2W
     Route: 042
     Dates: start: 20030902, end: 20040212
  2. FLUOROURACIL [Suspect]
     Dosage: 500 MG/M2 BOLUS-DAY 1, 8, 15 EVERY 4 WEEKS
     Route: 040
     Dates: start: 20030902, end: 20040212
  3. LEUCOVORIN CALCIUM [Suspect]
     Dosage: 20 MG/M2 WEEKS 1, 2, 3 EVERY 4 WEEKS
     Route: 042
     Dates: start: 20030902, end: 20040212

REACTIONS (4)
  - ACTIVITIES OF DAILY LIVING IMPAIRED [None]
  - DIFFICULTY IN WALKING [None]
  - FALL [None]
  - POLYNEUROPATHY [None]
